FAERS Safety Report 9171642 (Version 1)
Quarter: 2013Q1

REPORT INFORMATION
  Report Type: Spontaneous
  Country: DE (occurrence: DE)
  Receive Date: 20130319
  Receipt Date: 20130319
  Transmission Date: 20140127
  Serious: Yes (Other)
  Sender: FDA-Public Use
  Company Number: DE-GLAXOSMITHKLINE-D0078891A

PATIENT
  Sex: Female

DRUGS (5)
  1. LAMICTAL [Suspect]
     Route: 048
  2. ORFIRIL [Concomitant]
     Route: 065
  3. ROEKAN [Concomitant]
     Route: 065
  4. THOMASIN [Concomitant]
     Route: 065
  5. DICLOFENAC [Concomitant]
     Route: 065

REACTIONS (3)
  - Convulsion [Unknown]
  - Haematoma [Unknown]
  - Weight decreased [Unknown]
